FAERS Safety Report 8514256-7 (Version None)
Quarter: 2012Q3

REPORT INFORMATION
  Report Type: 
  Country: None (occurrence: None)
  Receive Date: 20120717
  Receipt Date: 20120709
  Transmission Date: 20120928
  Serious: Yes (Other)
  Sender: FDA-Public Use
  Company Number: US-PFIZER INC-2012164043

PATIENT
  Sex: Female

DRUGS (2)
  1. GLIPIZIDE [Suspect]
     Indication: DIABETES MELLITUS
     Dosage: UNK
  2. LANTUS [Suspect]
     Dosage: 24 UNITS, DAILY
     Route: 058

REACTIONS (6)
  - WEIGHT DECREASED [None]
  - ABDOMINAL DISCOMFORT [None]
  - TREMOR [None]
  - LOSS OF CONSCIOUSNESS [None]
  - BLOOD GLUCOSE INCREASED [None]
  - FEELING HOT [None]
